FAERS Safety Report 6788304-9 (Version None)
Quarter: 2010Q2

REPORT INFORMATION
  Report Type: 
  Country: None (occurrence: None)
  Receive Date: 20100623
  Receipt Date: 20080618
  Transmission Date: 20101027
  Serious: No
  Sender: FDA-Public Use
  Company Number: US-PFIZER INC-2008011852

PATIENT
  Sex: Male
  Weight: 81.65 kg

DRUGS (4)
  1. GEODON [Suspect]
     Indication: SCHIZOAFFECTIVE DISORDER
     Route: 048
     Dates: start: 20080205
  2. OLANZAPINE [Concomitant]
  3. VALPROIC ACID [Concomitant]
  4. LORAZEPAM [Concomitant]

REACTIONS (3)
  - ANTIPSYCHOTIC DRUG LEVEL INCREASED [None]
  - OVERDOSE [None]
  - SOMNOLENCE [None]
